FAERS Safety Report 9609252 (Version 1)
Quarter: 2013Q4

REPORT INFORMATION
  Report Type: Spontaneous
  Country: US (occurrence: US)
  Receive Date: 20131009
  Receipt Date: 20131009
  Transmission Date: 20140711
  Serious: No
  Sender: FDA-Public Use
  Company Number: US-PURDUE-USA-2012-0094891

PATIENT
  Age: 88 Year
  Sex: Female

DRUGS (2)
  1. BUTRANS [Suspect]
     Indication: ARTHRITIS
     Dosage: 5 MCG, 1/WEEK
     Route: 062
     Dates: start: 20121015
  2. METFORMIN                          /00082702/ [Concomitant]
     Indication: DIABETES MELLITUS
     Dosage: 500 MG, BID
     Route: 048
     Dates: start: 20121015, end: 20121019

REACTIONS (1)
  - Diarrhoea [Not Recovered/Not Resolved]
